FAERS Safety Report 7051249-3 (Version None)
Quarter: 2010Q4

REPORT INFORMATION
  Report Type: 
  Country: None (occurrence: None)
  Receive Date: 20101019
  Receipt Date: 20101006
  Transmission Date: 20110411
  Serious: Yes (Hospitalization, Other)
  Sender: FDA-Public Use
  Company Number: PHFR2010GB01483

PATIENT
  Sex: Male

DRUGS (4)
  1. CLOZARIL [Suspect]
     Indication: SCHIZOPHRENIA
     Dosage: 700 MG/DAY
     Route: 048
     Dates: start: 19980401, end: 20100715
  2. HALOPERIDOL [Concomitant]
     Indication: SCHIZOPHRENIA
     Dosage: 5 MG, UNK
     Dates: start: 20100813
  3. PROCYCLIDINE HYDROCHLORIDE 2MG TAB [Concomitant]
     Dosage: 5 MG, UNK
     Dates: start: 20100813
  4. MIRTAZAPINE [Concomitant]
     Indication: SCHIZOPHRENIA
     Dosage: 30 MG, UNK
     Dates: start: 20100813

REACTIONS (8)
  - ANAEMIA [None]
  - GASTROINTESTINAL DISORDER [None]
  - GASTROINTESTINAL SURGERY [None]
  - GASTROINTESTINAL TUBE INSERTION [None]
  - INTESTINAL OBSTRUCTION [None]
  - MENTAL IMPAIRMENT [None]
  - NEUTROPHIL COUNT DECREASED [None]
  - WHITE BLOOD CELL COUNT DECREASED [None]
